FAERS Safety Report 5130549-8 (Version None)
Quarter: 2006Q4

REPORT INFORMATION
  Report Type: 
  Country: None (occurrence: None)
  Receive Date: 20061017
  Receipt Date: 20061017
  Transmission Date: 20070319
  Serious: Yes (Hospitalization, Other)
  Sender: FDA-Public Use
  Company Number: None

PATIENT
  Age: 50 Year
  Sex: Male

DRUGS (6)
  1. BACTRIM DS [Suspect]
     Indication: INFECTION
     Dosage: PO
     Route: 048
     Dates: start: 20060226, end: 20060306
  2. ADVIL [Suspect]
     Indication: ANALGESIC EFFECT
     Dosage: PO
     Route: 048
     Dates: start: 20060226, end: 20060306
  3. PREDNISONE TAB [Concomitant]
  4. ADVAIR HFA [Concomitant]
  5. NYSTATIN [Concomitant]
  6. ALBUTEROL [Concomitant]

REACTIONS (6)
  - DYSPNOEA [None]
  - HYPERKALAEMIA [None]
  - HYPONATRAEMIA [None]
  - HYPOVOLAEMIA [None]
  - PAIN [None]
  - RENAL FAILURE ACUTE [None]
